FAERS Safety Report 16614879 (Version 1)
Quarter: 2019Q3

REPORT INFORMATION
  Report Type: Spontaneous
  Country: GR (occurrence: GR)
  Receive Date: 20190723
  Receipt Date: 20190723
  Transmission Date: 20191004
  Serious: Yes (Hospitalization)
  Sender: FDA-Public Use
  Company Number: GR-AUROBINDO-AUR-APL-2019-040838

PATIENT

DRUGS (1)
  1. AMOXICILLIN+CLAVULANIC ACID [Suspect]
     Active Substance: AMOXICILLIN\CLAVULANIC ACID
     Indication: STAPHYLOCOCCAL SCALDED SKIN SYNDROME
     Dosage: UNK
     Route: 048

REACTIONS (4)
  - Eyelid oedema [Recovering/Resolving]
  - Drug ineffective [Unknown]
  - Erythema [Recovering/Resolving]
  - Leukocytosis [Recovering/Resolving]
